FAERS Safety Report 7827915-6 (Version None)
Quarter: 2011Q3

REPORT INFORMATION
  Report Type: 
  Country: None (occurrence: None)
  Receive Date: 20110901
  Receipt Date: 20101104
  Transmission Date: 20111222
  Serious: Yes (Other)
  Sender: FDA-Public Use
  Company Number: 254029USA

PATIENT
  Sex: Female

DRUGS (1)
  1. METOCLOPRAMIDE [Suspect]
     Dosage: (10 MG), ORAL
     Route: 048
     Dates: start: 20080305, end: 20090717

REACTIONS (4)
  - PARKINSON'S DISEASE [None]
  - DYSKINESIA [None]
  - PARKINSONISM [None]
  - TARDIVE DYSKINESIA [None]
